FAERS Safety Report 7239743-3 (Version None)
Quarter: 2011Q1

REPORT INFORMATION
  Report Type: 
  Country: None (occurrence: None)
  Receive Date: 20110122
  Receipt Date: 20101029
  Transmission Date: 20110831
  Serious: No
  Sender: FDA-Public Use
  Company Number: US-ALLERGAN-1013947US

PATIENT
  Age: 50 Year
  Sex: Female

DRUGS (1)
  1. LATISSE [Suspect]
     Indication: HYPOTRICHOSIS
     Dosage: 1 GTT, SINGLE
     Route: 061
     Dates: start: 20100901, end: 20100901

REACTIONS (2)
  - ERYTHEMA OF EYELID [None]
  - SCLERAL HYPERAEMIA [None]
